FAERS Safety Report 4541974-8 (Version None)
Quarter: 2004Q4

REPORT INFORMATION
  Report Type: 
  Country: None (occurrence: None)
  Receive Date: 20041227
  Receipt Date: 20041209
  Transmission Date: 20050328
  Serious: Yes (Other)
  Sender: FDA-Public Use
  Company Number: DSA_25493_2004

PATIENT
  Age: 55 Year
  Sex: Female
  Weight: 65.7716 kg

DRUGS (5)
  1. CARDIZEM [Suspect]
     Indication: CARDIOMYOPATHY
     Dosage: DF  PO
     Route: 048
     Dates: start: 19940101, end: 19940101
  2. CARDIZEM [Suspect]
     Indication: HYPERTENSION
     Dosage: DF  PO
     Route: 048
     Dates: start: 19940101, end: 19940101
  3. PREMARIN [Concomitant]
  4. PROVERA [Concomitant]
  5. PERCODAN [Concomitant]

REACTIONS (6)
  - CRYING [None]
  - DYSARTHRIA [None]
  - EUPHORIC MOOD [None]
  - HALLUCINATION [None]
  - LIBIDO DECREASED [None]
  - PARANOIA [None]
